FAERS Safety Report 8843041 (Version 4)
Quarter: 2014Q3

REPORT INFORMATION
  Report Type: Report from Study
  Country: US (occurrence: US)
  Receive Date: 20121016
  Receipt Date: 20140925
  Transmission Date: 20150326
  Serious: Yes (Death, Hospitalization)
  Sender: FDA-Public Use
  Company Number: US-VIIV HEALTHCARE LIMITED-B0771083A

PATIENT
  Age: 43 Year
  Sex: Male
  Weight: 73.9 kg

DRUGS (12)
  1. MIRTAZAPINE. [Concomitant]
     Active Substance: MIRTAZAPINE
     Dates: start: 20090923, end: 20110921
  2. LAMICTAL [Concomitant]
     Active Substance: LAMOTRIGINE
     Dates: start: 20061128
  3. RITONAVIR [Concomitant]
     Active Substance: RITONAVIR
     Dosage: 200MG PER DAY
     Dates: start: 20100513
  4. ECONAZOLE [Concomitant]
     Active Substance: ECONAZOLE
     Dates: start: 20100512, end: 201012
  5. PHENYTEK [Concomitant]
     Active Substance: PHENYTOIN SODIUM
     Dates: start: 20090923
  6. TRUVADA [Concomitant]
     Active Substance: EMTRICITABINE\TENOFOVIR DISOPROXIL FUMARATE
     Dosage: 1TAB PER DAY
     Dates: start: 20061126
  7. DARUNAVIR [Concomitant]
     Active Substance: DARUNAVIR
     Dosage: 1200MG PER DAY
     Dates: start: 20100513
  8. PROMETHAZINE [Concomitant]
     Active Substance: PROMETHAZINE\PROMETHAZINE HYDROCHLORIDE
     Dates: start: 20101201, end: 20110921
  9. PHENYTOIN. [Concomitant]
     Active Substance: PHENYTOIN
     Dates: start: 20100824, end: 20110921
  10. BACTRIM DS [Concomitant]
     Active Substance: SULFAMETHOXAZOLE\TRIMETHOPRIM
     Dates: start: 20061126
  11. MARAVIROC [Suspect]
     Active Substance: MARAVIROC
     Indication: HIV INFECTION
     Dosage: 600MG PER DAY
     Route: 048
     Dates: start: 20100513
  12. OXCARBAZEPINE. [Concomitant]
     Active Substance: OXCARBAZEPINE
     Dates: start: 20090923

REACTIONS (6)
  - Septic shock [Fatal]
  - Pneumonia [Fatal]
  - Myocardial infarction [Fatal]
  - Pneumonia aspiration [Recovered/Resolved]
  - Convulsion [Fatal]
  - Convulsion [Recovered/Resolved]

NARRATIVE: CASE EVENT DATE: 20110422
